FAERS Safety Report 23554950 (Version 3)
Quarter: 2024Q2

REPORT INFORMATION
  Report Type: Spontaneous
  Country: US (occurrence: US)
  Receive Date: 20240222
  Receipt Date: 20240618
  Transmission Date: 20240716
  Serious: No
  Sender: FDA-Public Use
  Company Number: US-PFIZER INC-202400044641

PATIENT
  Age: 55 Year
  Sex: Female

DRUGS (5)
  1. IBRANCE [Suspect]
     Active Substance: PALBOCICLIB
     Indication: Breast cancer female
     Dosage: 75 MG, CYCLIC (FOR 3 WEEKS AND THEN REST FOR 1 WEEK)
  2. IBRANCE [Suspect]
     Active Substance: PALBOCICLIB
     Indication: Agranulocytosis
     Dosage: 75 MG, CYCLIC, (TAKE 1 TAB DAILY FOR 21 DAYS FOLLOWED BY 1 WEEK OFF)
  3. IBRANCE [Suspect]
     Active Substance: PALBOCICLIB
     Indication: Chemotherapy
  4. IBRANCE [Suspect]
     Active Substance: PALBOCICLIB
     Indication: Lymphadenopathy
  5. IBRANCE [Suspect]
     Active Substance: PALBOCICLIB
     Indication: Oestrogen receptor assay positive

REACTIONS (2)
  - Platelet count decreased [Unknown]
  - Laboratory test abnormal [Unknown]
